FAERS Safety Report 21936900 (Version 1)
Quarter: 2023Q1

REPORT INFORMATION
  Report Type: Spontaneous
  Country: LU (occurrence: LU)
  Receive Date: 20230201
  Receipt Date: 20230201
  Transmission Date: 20230418
  Serious: Yes (Hospitalization, Disabling)
  Sender: FDA-Public Use
  Company Number: None

PATIENT
  Age: 37 Year
  Sex: Male
  Weight: 72.7 kg

DRUGS (7)
  1. OXALIPLATIN [Suspect]
     Active Substance: OXALIPLATIN
     Indication: Rectosigmoid cancer
     Dosage: 2ND CYCLE OF CHEMOTHERAPY ,85 MG/M2
     Dates: start: 20221019, end: 20221019
  2. VECTIBIX [Suspect]
     Active Substance: PANITUMUMAB
     Indication: Rectosigmoid cancer
     Dosage: 2ND CYCLE OF CHEMOTHERAPY ,6 MG/KG
     Dates: start: 20221019, end: 20221019
  3. PANITUMUMAB [Concomitant]
     Active Substance: PANITUMUMAB
     Indication: Premedication
     Dates: start: 20221007
  4. LEUCOVORIN [Concomitant]
     Active Substance: LEUCOVORIN
     Indication: Premedication
     Dates: start: 20221019, end: 20221019
  5. DEXAMETHASONE [Concomitant]
     Active Substance: DEXAMETHASONE
     Indication: Premedication
     Dates: start: 20221019, end: 20221019
  6. POLARAMINE [Concomitant]
     Active Substance: DEXCHLORPHENIRAMINE MALEATE
     Indication: Premedication
     Dates: start: 20221019, end: 20221019
  7. ONDANSETRON [Concomitant]
     Active Substance: ONDANSETRON
     Indication: Premedication
     Dates: start: 20221019, end: 20221019

REACTIONS (2)
  - Burning sensation [Recovered/Resolved]
  - Dyspnoea [Recovering/Resolving]

NARRATIVE: CASE EVENT DATE: 20221019
